FAERS Safety Report 4275874-8 (Version None)
Quarter: 2004Q1

REPORT INFORMATION
  Report Type: 
  Country: None (occurrence: None)
  Receive Date: 20040121
  Receipt Date: 20030211
  Transmission Date: 20041129
  Serious: No
  Sender: FDA-Public Use
  Company Number: US-GLAXOSMITHKLINE-A0396252A

PATIENT
  Age: 52 Year
  Sex: Female

DRUGS (3)
  1. VALTREX [Suspect]
     Dosage: 1G TWICE PER DAY
     Route: 048
     Dates: start: 19930101
  2. VALTREX [Suspect]
     Dosage: 500MG PER DAY
     Route: 048
     Dates: end: 20030301
  3. NO CONCURRENT MEDICATIONS [Concomitant]

REACTIONS (10)
  - DRUG INEFFECTIVE [None]
  - GASTROINTESTINAL MOTILITY DISORDER [None]
  - HEPATOCELLULAR DAMAGE [None]
  - INJURY [None]
  - MALAISE [None]
  - NAUSEA [None]
  - POST GASTRIC SURGERY SYNDROME [None]
  - ROAD TRAFFIC ACCIDENT [None]
  - VOMITING [None]
  - WRIST FRACTURE [None]
